FAERS Safety Report 6275088-6 (Version None)
Quarter: 2009Q3

REPORT INFORMATION
  Report Type: 
  Country: None (occurrence: None)
  Receive Date: 20090721
  Receipt Date: 20090709
  Transmission Date: 20100115
  Serious: Yes (Hospitalization, Other)
  Sender: FDA-Public Use
  Company Number: PHEH2008US08703

PATIENT
  Sex: Female

DRUGS (4)
  1. ZOMETA [Suspect]
     Indication: NEOPLASM MALIGNANT
     Dosage: UNK
     Dates: end: 20060701
  2. AREDIA [Suspect]
     Dosage: 60MG
     Route: 042
  3. CHEMOTHERAPEUTICS NOS [Concomitant]
  4. FEMARA [Concomitant]

REACTIONS (28)
  - ANAEMIA [None]
  - ANHEDONIA [None]
  - ANXIETY [None]
  - BACTERIA URINE IDENTIFIED [None]
  - BLOOD CALCIUM INCREASED [None]
  - CARDIOMEGALY [None]
  - CELLULITIS [None]
  - COMA [None]
  - DEFORMITY [None]
  - DEHYDRATION [None]
  - EATING DISORDER SYMPTOM [None]
  - EMOTIONAL DISTRESS [None]
  - ENCEPHALOPATHY [None]
  - INJURY [None]
  - MASTICATION DISORDER [None]
  - OSTEOMYELITIS [None]
  - OSTEONECROSIS [None]
  - OSTEORADIONECROSIS [None]
  - PACKED RED BLOOD CELL TRANSFUSION [None]
  - PAIN [None]
  - PAIN IN JAW [None]
  - PERIODONTITIS [None]
  - RENAL IMPAIRMENT [None]
  - SWELLING [None]
  - TOOTH EXTRACTION [None]
  - VOMITING [None]
  - WEIGHT DECREASED [None]
  - WOUND INFECTION STAPHYLOCOCCAL [None]
